FAERS Safety Report 9563857 (Version 1)
Quarter: 2013Q3

REPORT INFORMATION
  Report Type: Spontaneous
  Country: US (occurrence: None)
  Receive Date: 20130926
  Receipt Date: 20130926
  Transmission Date: 20140515
  Serious: Yes (Life-Threatening)
  Sender: FDA-Public Use
  Company Number: None

PATIENT
  Age: 44 Year
  Sex: Female
  Weight: 49.9 kg

DRUGS (1)
  1. PARNATE [Suspect]
     Indication: DEPRESSION
     Dosage: 2 PILLS; ONCE DAILY
     Route: 048

REACTIONS (2)
  - Hypertension [None]
  - Headache [None]
